FAERS Safety Report 20229488 (Version 5)
Quarter: 2022Q1

REPORT INFORMATION
  Report Type: Report from Study
  Country: US (occurrence: US)
  Receive Date: 20211225
  Receipt Date: 20220214
  Transmission Date: 20220424
  Serious: Yes (Hospitalization)
  Sender: FDA-Public Use
  Company Number: US-SANOFI-00799235

PATIENT
  Age: 70 Year
  Sex: Female
  Weight: 33 kg

DRUGS (2)
  1. DUPILUMAB [Suspect]
     Active Substance: DUPILUMAB
     Indication: Dermatitis atopic
     Dosage: 600 MG, 1X
     Route: 058
  2. DUPILUMAB [Suspect]
     Active Substance: DUPILUMAB
     Dosage: 300 MG, QOW
     Route: 058

REACTIONS (8)
  - Dyspnoea [Not Recovered/Not Resolved]
  - Electrolyte imbalance [Unknown]
  - Injection site pain [Unknown]
  - Alopecia [Not Recovered/Not Resolved]
  - Condition aggravated [Unknown]
  - Weight decreased [Not Recovered/Not Resolved]
  - Gait inability [Unknown]
  - Weight increased [Unknown]

NARRATIVE: CASE EVENT DATE: 20210101
